FAERS Safety Report 18590850 (Version 5)
Quarter: 2023Q4

REPORT INFORMATION
  Report Type: Spontaneous
  Country: RO (occurrence: RO)
  Receive Date: 20201208
  Receipt Date: 20231025
  Transmission Date: 20240110
  Serious: Yes (Other)
  Sender: FDA-Public Use
  Company Number: RO-STADA-212098

PATIENT
  Age: 50 Year
  Sex: Female

DRUGS (4)
  1. LANREOTIDE ACETATE [Suspect]
     Active Substance: LANREOTIDE ACETATE
     Indication: Somatostatinoma
     Route: 065
  2. CAPECITABINE [Suspect]
     Active Substance: CAPECITABINE
     Indication: Somatostatinoma
     Dosage: CAPTEM CHEMOTHERAPY REGIMEN RECEIVED BID ON DAYS 1-14
     Route: 065
  3. TEMOZOLOMIDE [Suspect]
     Active Substance: TEMOZOLOMIDE
     Indication: Somatostatinoma
     Dosage: CAPTEM CHEMOTHERAPY REGIMEN RECEIVED ON DAYS 10-14 EVERY 28 DAYS
     Route: 065
  4. TEMOZOLOMIDE [Suspect]
     Active Substance: TEMOZOLOMIDE
     Indication: Neurofibromatosis

REACTIONS (2)
  - Palmar-plantar erythrodysaesthesia syndrome [Unknown]
  - Thrombocytopenia [Unknown]
